FAERS Safety Report 19767972 (Version 2)
Quarter: 2021Q3

REPORT INFORMATION
  Report Type: Spontaneous
  Country: US (occurrence: US)
  Receive Date: 20210831
  Receipt Date: 20210906
  Transmission Date: 20211014
  Serious: Yes (Hospitalization, Other)
  Sender: FDA-Public Use
  Company Number: US-AUROBINDO-AUR-APL-2021-036137

PATIENT
  Age: 33 Year
  Sex: Female

DRUGS (18)
  1. SULBACTAM/AMPICILLIN [Concomitant]
     Active Substance: AMPICILLIN SODIUM\SULBACTAM SODIUM
     Indication: COLITIS ULCERATIVE
     Dosage: UNK
     Route: 065
  2. AZATHIOPRINE. [Concomitant]
     Active Substance: AZATHIOPRINE
     Indication: COLITIS ULCERATIVE
     Dosage: UNK
     Route: 065
  3. PYRIDOXINE [Concomitant]
     Active Substance: PYRIDOXINE
     Indication: COLITIS ULCERATIVE
     Dosage: UNK
     Route: 065
  4. ONDANSETRON [Concomitant]
     Active Substance: ONDANSETRON
     Indication: COLITIS ULCERATIVE
     Dosage: UNK
     Route: 042
  5. HYDROMORPHONE [Concomitant]
     Active Substance: HYDROMORPHONE
     Indication: COLITIS ULCERATIVE
     Dosage: UNK
     Route: 065
  6. LORAZEPAM. [Concomitant]
     Active Substance: LORAZEPAM
     Indication: COLITIS ULCERATIVE
     Dosage: UNK
     Route: 065
  7. COLECALCIFEROL [Concomitant]
     Active Substance: CHOLECALCIFEROL
     Indication: COLITIS ULCERATIVE
     Dosage: UNK
     Route: 065
  8. SULFASALAZINE. [Concomitant]
     Active Substance: SULFASALAZINE
     Indication: PAIN
     Dosage: UNK
     Route: 065
  9. TRAMADOL. [Concomitant]
     Active Substance: TRAMADOL
     Indication: COLITIS ULCERATIVE
     Dosage: UNK
     Route: 065
  10. MESALAZINE [Concomitant]
     Active Substance: MESALAMINE
     Indication: PAIN
     Dosage: UNK
     Route: 065
  11. METHYLPREDNISOLONE. [Suspect]
     Active Substance: METHYLPREDNISOLONE
     Indication: COLITIS ULCERATIVE
     Dosage: UNK
     Route: 042
  12. CYCLOBENZAPRINE. [Concomitant]
     Active Substance: CYCLOBENZAPRINE
     Indication: COLITIS ULCERATIVE
     Dosage: UNK
     Route: 065
  13. GABAPENTIN. [Concomitant]
     Active Substance: GABAPENTIN
     Indication: COLITIS ULCERATIVE
     Dosage: UNK
     Route: 065
  14. SUMATRIPTAN. [Concomitant]
     Active Substance: SUMATRIPTAN
     Indication: COLITIS ULCERATIVE
     Dosage: UNK
     Route: 065
  15. PREDNISONE. [Concomitant]
     Active Substance: PREDNISONE
     Indication: COLITIS ULCERATIVE
     Dosage: UNK
     Route: 065
  16. OMEPRAZOLE. [Concomitant]
     Active Substance: OMEPRAZOLE
     Indication: COLITIS ULCERATIVE
     Dosage: UNK
     Route: 065
  17. SERTRALINE [Concomitant]
     Active Substance: SERTRALINE HYDROCHLORIDE
     Indication: COLITIS ULCERATIVE
     Dosage: UNK
     Route: 065
  18. ACETAMINOPHEN. [Concomitant]
     Active Substance: ACETAMINOPHEN
     Indication: COLITIS ULCERATIVE
     Dosage: UNK
     Route: 065

REACTIONS (2)
  - Listeriosis [Unknown]
  - Exposure during pregnancy [Unknown]
